FAERS Safety Report 13864549 (Version 1)
Quarter: 2017Q3

REPORT INFORMATION
  Report Type: Spontaneous
  Country: US (occurrence: US)
  Receive Date: 20170813
  Receipt Date: 20170813
  Transmission Date: 20171127
  Serious: No
  Sender: FDA-Public Use
  Company Number: None

PATIENT
  Age: 70 Year
  Sex: Male
  Weight: 78.75 kg

DRUGS (14)
  1. PLAVIS [Concomitant]
  2. LISENAPROL [Concomitant]
  3. RANEXA [Suspect]
     Active Substance: RANOLAZINE
     Indication: ANGINA PECTORIS
     Dosage: ?          QUANTITY:2 CAPSULE(S);?
     Route: 048
     Dates: start: 20170805
  4. ELIQUIS [Concomitant]
     Active Substance: APIXABAN
  5. VITAMIN D [Concomitant]
     Active Substance: CHOLECALCIFEROL
  6. GLUCOSAMINE [Concomitant]
     Active Substance: GLUCOSAMINE
  7. OMEA XL [Concomitant]
  8. TAMSULOSIN [Concomitant]
     Active Substance: TAMSULOSIN
  9. GABAPETENT [Concomitant]
  10. SOTALOL. [Concomitant]
     Active Substance: SOTALOL
  11. LIPITOR [Concomitant]
     Active Substance: ATORVASTATIN CALCIUM
  12. CENTRUM SILVER [Concomitant]
     Active Substance: MINERALS\VITAMINS
  13. GARLIC. [Concomitant]
     Active Substance: GARLIC
  14. IMDUR [Concomitant]
     Active Substance: ISOSORBIDE MONONITRATE

REACTIONS (2)
  - Discomfort [None]
  - Pain [None]
